FAERS Safety Report 5132174-1 (Version None)
Quarter: 2006Q4

REPORT INFORMATION
  Report Type: 
  Country: None (occurrence: None)
  Receive Date: 20061017
  Receipt Date: 20060928
  Transmission Date: 20070319
  Serious: Yes (Hospitalization, Other)
  Sender: FDA-Public Use
  Company Number: US200609007412

PATIENT
  Sex: Female

DRUGS (1)
  1. CYMBALTA [Suspect]
     Dosage: 29 MG, 2/D,

REACTIONS (2)
  - GASTROINTESTINAL TUBE INSERTION [None]
  - MENTAL STATUS CHANGES [None]
